FAERS Safety Report 16755443 (Version 1)
Quarter: 2019Q3

REPORT INFORMATION
  Report Type: Spontaneous
  Country: US (occurrence: US)
  Receive Date: 20190711
  Receipt Date: 20190711
  Transmission Date: 20191005
  Serious: Yes (Death)
  Sender: FDA-Public Use
  Company Number: None

PATIENT
  Age: 53 Year
  Sex: Male

DRUGS (4)
  1. SPIRONOLACTONE. [Concomitant]
     Active Substance: SPIRONOLACTONE
  2. LISIN/HCTZ [Concomitant]
  3. KCI [Concomitant]
  4. CAPECITABINE  500MG TAB [Suspect]
     Active Substance: CAPECITABINE
     Indication: RECTAL CANCER
     Dosage: ?          OTHER DOSE:4 TABS;OTHER FREQUENCY:QD 7D ON, + 7D OFF;?
     Route: 048
     Dates: start: 20171026, end: 20190624

REACTIONS (1)
  - Death [None]

NARRATIVE: CASE EVENT DATE: 20190624
